FAERS Safety Report 23728192 (Version 1)
Quarter: 2024Q2

REPORT INFORMATION
  Report Type: Spontaneous
  Country: US (occurrence: US)
  Receive Date: 20240410
  Receipt Date: 20240410
  Transmission Date: 20240716
  Serious: Yes (Death, Hospitalization)
  Sender: FDA-Public Use
  Company Number: US-AMGEN-USASP2024069956

PATIENT
  Age: 86 Year
  Sex: Female

DRUGS (4)
  1. BLINATUMOMAB [Suspect]
     Active Substance: BLINATUMOMAB
     Indication: B-cell type acute leukaemia
     Dosage: UNK, 28 DAY INFUSION
     Route: 065
  2. METHOTREXATE [Concomitant]
     Active Substance: METHOTREXATE
     Indication: B-cell type acute leukaemia
  3. CYTARABINE [Concomitant]
     Active Substance: CYTARABINE
     Indication: B-cell type acute leukaemia
  4. HYDROCORTISONE [Concomitant]
     Active Substance: HYDROCORTISONE
     Indication: B-cell type acute leukaemia
     Dosage: UNK UNK, ONCE ER CYCLE

REACTIONS (5)
  - Death [Fatal]
  - Malignant ascites [Unknown]
  - Spontaneous bacterial peritonitis [Unknown]
  - Neurotoxicity [Unknown]
  - B-cell type acute leukaemia [Unknown]
